FAERS Safety Report 4492619-7 (Version None)
Quarter: 2004Q4

REPORT INFORMATION
  Report Type: 
  Country: None (occurrence: None)
  Receive Date: 20041104
  Receipt Date: 20040820
  Transmission Date: 20050328
  Serious: Yes (Other)
  Sender: FDA-Public Use
  Company Number: 200416323US

PATIENT
  Sex: Female
  Weight: 72.7 kg

DRUGS (1)
  1. ARAVA [Suspect]
     Indication: SPONDYLITIS
     Route: 048
     Dates: start: 20021217, end: 20030113

REACTIONS (2)
  - ALANINE AMINOTRANSFERASE INCREASED [None]
  - ASPARTATE AMINOTRANSFERASE INCREASED [None]
